FAERS Safety Report 10464898 (Version 4)
Quarter: 2014Q4

REPORT INFORMATION
  Report Type: Report from Study
  Country: BE (occurrence: BE)
  Receive Date: 20140919
  Receipt Date: 20141003
  Transmission Date: 20150528
  Serious: Yes (Hospitalization)
  Sender: FDA-Public Use
  Company Number: BE-JNJFOC-20140720661

PATIENT
  Age: 80 Year
  Sex: Female
  Weight: 50 kg

DRUGS (18)
  1. IBRUTINIB [Suspect]
     Active Substance: IBRUTINIB
     Indication: CHRONIC LYMPHOCYTIC LEUKAEMIA
     Route: 048
     Dates: start: 20140628, end: 20140724
  2. LORAZEPAM. [Concomitant]
     Active Substance: LORAZEPAM
     Route: 048
  3. NEXIUM [Concomitant]
     Active Substance: ESOMEPRAZOLE MAGNESIUM
     Route: 048
  4. TEMESTA [Concomitant]
     Active Substance: LORAZEPAM
     Route: 048
  5. ISO-BETADINE [Concomitant]
     Active Substance: POVIDONE-IODINE
     Route: 003
  6. ESCITALOPRAM [Concomitant]
     Active Substance: ESCITALOPRAM OXALATE
     Route: 048
  7. TRADONAL [Concomitant]
     Active Substance: TRAMADOL HYDROCHLORIDE
     Route: 048
  8. IBRUTINIB [Suspect]
     Active Substance: IBRUTINIB
     Indication: CHRONIC LYMPHOCYTIC LEUKAEMIA
     Route: 048
     Dates: start: 20140909, end: 20140915
  9. IBRUTINIB [Suspect]
     Active Substance: IBRUTINIB
     Indication: CHRONIC LYMPHOCYTIC LEUKAEMIA
     Route: 048
     Dates: start: 20140812, end: 20140826
  10. DAFALGAN FORTE [Concomitant]
     Route: 048
  11. TEARS NATURALE [Concomitant]
     Route: 047
  12. ZOVIRAX [Concomitant]
     Active Substance: ACYCLOVIR
     Route: 047
  13. FUCIDIN [Concomitant]
     Active Substance: FUSIDIC ACID
     Route: 003
  14. MOVICOL SACHET [Concomitant]
     Route: 048
  15. ASAFLOW [Concomitant]
     Active Substance: ASPIRIN
     Route: 048
  16. AMLOR [Concomitant]
     Active Substance: AMLODIPINE BESYLATE
     Route: 048
  17. LOGIMAT [Concomitant]
     Route: 048
  18. TRADONAL [Concomitant]
     Active Substance: TRAMADOL HYDROCHLORIDE
     Route: 048

REACTIONS (5)
  - Cardiac failure [Recovered/Resolved]
  - Hypernatraemia [Recovered/Resolved]
  - Malaise [Recovered/Resolved]
  - Ophthalmic herpes zoster [Recovered/Resolved with Sequelae]
  - Atrial fibrillation [Recovered/Resolved]

NARRATIVE: CASE EVENT DATE: 20140724
